FAERS Safety Report 7685449-6 (Version None)
Quarter: 2011Q3

REPORT INFORMATION
  Report Type: 
  Country: None (occurrence: None)
  Receive Date: 20110816
  Receipt Date: 20110812
  Transmission Date: 20111222
  Serious: Yes (Other)
  Sender: FDA-Public Use
  Company Number: CN-PFIZER INC-2011181135

PATIENT
  Age: 76 Year
  Sex: Male

DRUGS (3)
  1. CORDARONE [Suspect]
     Dosage: 1 DF, 1X/DAY
     Route: 048
     Dates: start: 20110501, end: 20110802
  2. CORDARONE [Suspect]
     Indication: ATRIAL FIBRILLATION
     Dosage: 1 DF, 2X/DAY
     Route: 048
     Dates: start: 20110501, end: 20110501
  3. COZAAR [Concomitant]
     Indication: HYPERTENSION
     Dosage: UNK
     Dates: start: 20090101

REACTIONS (3)
  - DRUG INEFFECTIVE FOR UNAPPROVED INDICATION [None]
  - INAPPROPRIATE SCHEDULE OF DRUG ADMINISTRATION [None]
  - ATRIAL FIBRILLATION [None]
